FAERS Safety Report 13226369 (Version 1)
Quarter: 2017Q1

REPORT INFORMATION
  Report Type: Spontaneous
  Country: US (occurrence: US)
  Receive Date: 20170213
  Receipt Date: 20170213
  Transmission Date: 20170428
  Serious: Yes (Other)
  Sender: FDA-Public Use
  Company Number: US-PFIZER INC-2017063481

PATIENT
  Age: 41 Year
  Sex: Female
  Weight: 70.3 kg

DRUGS (3)
  1. CYMBALTA [Concomitant]
     Active Substance: DULOXETINE HYDROCHLORIDE
     Indication: FIBROMYALGIA
     Dosage: 120MG, CAPSULE, ORALLY
     Route: 048
  2. IBUPROFEN. [Concomitant]
     Active Substance: IBUPROFEN
     Indication: MUSCLE SPASMS
     Dosage: 800 MG, UNK
  3. GABAPENTIN. [Suspect]
     Active Substance: GABAPENTIN
     Indication: FIBROMYALGIA
     Dosage: 600MG, TABLET, ORALLY (ONE IN THE MORNING ONE IN THE AFTERNOON AND TWO AT NIGHT)
     Route: 048

REACTIONS (4)
  - Road traffic accident [Unknown]
  - Drug ineffective for unapproved indication [Unknown]
  - Musculoskeletal pain [Unknown]
  - Back pain [Unknown]
